FAERS Safety Report 9355908 (Version 2)
Quarter: 2013Q2

REPORT INFORMATION
  Report Type: Report from Study
  Country: US (occurrence: US)
  Receive Date: 20130619
  Receipt Date: 20130627
  Transmission Date: 20140414
  Serious: Yes (Death)
  Sender: FDA-Public Use
  Company Number: US-ROCHE-1238509

PATIENT
  Sex: Male
  Weight: 80 kg

DRUGS (4)
  1. ACTIVASE [Suspect]
     Indication: PRODUCT USED FOR UNKNOWN INDICATION
     Route: 065
     Dates: end: 20130324
  2. MORPHINE [Concomitant]
     Route: 042
     Dates: start: 20130324, end: 20130324
  3. MORPHINE [Concomitant]
     Route: 042
     Dates: start: 20130324, end: 20130324
  4. PROTONIX (UNITED STATES) [Concomitant]
     Route: 065
     Dates: start: 20130324, end: 20130324

REACTIONS (2)
  - Respiratory failure [Fatal]
  - Respiratory distress [Fatal]
